FAERS Safety Report 6527957-7 (Version None)
Quarter: 2010Q1

REPORT INFORMATION
  Report Type: 
  Country: None (occurrence: None)
  Receive Date: 20100105
  Receipt Date: 20100105
  Transmission Date: 20100710
  Serious: No
  Sender: FDA-Public Use
  Company Number: None

PATIENT
  Age: 44 Year
  Sex: Female
  Weight: 63.5036 kg

DRUGS (4)
  1. LOVENOX [Suspect]
     Indication: DEEP VEIN THROMBOSIS
     Dosage: 60MG TWICE DAILY SQ
     Route: 058
     Dates: start: 20090829, end: 20091004
  2. LOVENOX [Suspect]
     Indication: PULMONARY EMBOLISM
     Dosage: 60MG TWICE DAILY SQ
     Route: 058
     Dates: start: 20090829, end: 20091004
  3. LOVENOX [Suspect]
     Indication: DEEP VEIN THROMBOSIS
     Dosage: 90MG ONCE DAILY SQ
     Route: 058
     Dates: start: 20091005, end: 20091115
  4. LOVENOX [Suspect]
     Indication: PULMONARY EMBOLISM
     Dosage: 90MG ONCE DAILY SQ
     Route: 058
     Dates: start: 20091005, end: 20091115

REACTIONS (3)
  - HAIR COLOUR CHANGES [None]
  - HAIR DISORDER [None]
  - TRICHORRHEXIS [None]
